FAERS Safety Report 7602967-7 (Version None)
Quarter: 2011Q3

REPORT INFORMATION
  Report Type: 
  Country: None (occurrence: None)
  Receive Date: 20110712
  Receipt Date: 20110421
  Transmission Date: 20111222
  Serious: No
  Sender: FDA-Public Use
  Company Number: A0924014A

PATIENT
  Age: 62 Year
  Sex: Male

DRUGS (7)
  1. JALYN [Suspect]
     Indication: BENIGN PROSTATIC HYPERPLASIA
     Dosage: 1CAP PER DAY
     Route: 048
     Dates: start: 20110301
  2. NATEGLINIDE [Concomitant]
  3. DIOVAN [Concomitant]
  4. JANUMET [Concomitant]
  5. ACTOS [Concomitant]
  6. ASPIRIN [Concomitant]
  7. SIMVASTATIN [Concomitant]

REACTIONS (4)
  - PALLOR [None]
  - BLOOD GLUCOSE DECREASED [None]
  - DIZZINESS [None]
  - PALPITATIONS [None]
